FAERS Safety Report 23388933 (Version 1)
Quarter: 2024Q1

REPORT INFORMATION
  Report Type: Report from Study
  Country: US (occurrence: US)
  Receive Date: 20240110
  Receipt Date: 20240110
  Transmission Date: 20240410
  Serious: Yes (Hospitalization)
  Sender: FDA-Public Use
  Company Number: US-Eisai-EC-2024-156726

PATIENT
  Age: 54 Year
  Sex: Female
  Weight: 80 kg

DRUGS (11)
  1. LENVIMA [Suspect]
     Active Substance: LENVATINIB
     Indication: Thyroid cancer
     Route: 048
     Dates: start: 20211130
  2. ONDANSETRON HYDROCHLORIDE [Concomitant]
     Active Substance: ONDANSETRON HYDROCHLORIDE
  3. LASIX [Concomitant]
     Active Substance: FUROSEMIDE
  4. MOTRIN IB [Concomitant]
     Active Substance: IBUPROFEN
  5. ALEVE [Concomitant]
     Active Substance: NAPROXEN SODIUM
  6. GABAPENTIN [Concomitant]
     Active Substance: GABAPENTIN
  7. PROTONIX [Concomitant]
     Active Substance: PANTOPRAZOLE SODIUM
  8. LISINOPRIL [Concomitant]
     Active Substance: LISINOPRIL
  9. ALLOPURINOL [Concomitant]
     Active Substance: ALLOPURINOL
  10. FERROUS SULFATE [Concomitant]
     Active Substance: FERROUS SULFATE
  11. METFORMIN HYDROCHLORIDE [Concomitant]
     Active Substance: METFORMIN HYDROCHLORIDE

REACTIONS (1)
  - Renal disorder [Unknown]

NARRATIVE: CASE EVENT DATE: 20240103
